FAERS Safety Report 9387473 (Version 1)
Quarter: 2013Q3

REPORT INFORMATION
  Report Type: Spontaneous
  Country: US (occurrence: US)
  Receive Date: 20130708
  Receipt Date: 20130708
  Transmission Date: 20140515
  Serious: No
  Sender: FDA-Public Use
  Company Number: US-PFIZER INC-2013199243

PATIENT
  Age: 48 Year
  Sex: Male
  Weight: 79.37 kg

DRUGS (2)
  1. ADVIL [Suspect]
     Indication: HEADACHE
     Dosage: 200 MG, TWO TIMES A DAY (TWO IN MORNING AND ONE IN EVENING)
     Route: 048
  2. ADVIL [Suspect]
     Indication: TOOTHACHE

REACTIONS (2)
  - Expired drug administered [Unknown]
  - Drug ineffective [Unknown]
